FAERS Safety Report 9209510 (Version 1)
Quarter: 2013Q2

REPORT INFORMATION
  Report Type: Spontaneous
  Country: US (occurrence: None)
  Receive Date: 20130403
  Receipt Date: 20130403
  Transmission Date: 20140414
  Serious: Yes (Disabling)
  Sender: FDA-Public Use
  Company Number: None

PATIENT
  Sex: Female
  Weight: 48.99 kg

DRUGS (1)
  1. CRESTOR [Suspect]
     Indication: BLOOD CHOLESTEROL INCREASED
     Route: 048
     Dates: start: 2009, end: 2013

REACTIONS (7)
  - Balance disorder [None]
  - Abasia [None]
  - Atrial fibrillation [None]
  - Deafness unilateral [None]
  - Myalgia [None]
  - Vision blurred [None]
  - Mental disorder [None]
